FAERS Safety Report 13609998 (Version 4)
Quarter: 2018Q1

REPORT INFORMATION
  Report Type: Report from Study
  Country: CO (occurrence: CO)
  Receive Date: 20170603
  Receipt Date: 20180221
  Transmission Date: 20180508
  Serious: Yes (Other)
  Sender: FDA-Public Use
  Company Number: CO-AMGEN-COLSL2017083036

PATIENT
  Age: 64 Year
  Sex: Female

DRUGS (3)
  1. NPLATE [Suspect]
     Active Substance: ROMIPLOSTIM
     Dosage: 250 MCG, QWK
     Route: 058
     Dates: start: 20170510
  2. NPLATE [Suspect]
     Active Substance: ROMIPLOSTIM
     Dosage: 1 MCG/KG, UNK
     Route: 058
  3. NPLATE [Suspect]
     Active Substance: ROMIPLOSTIM
     Indication: IMMUNE THROMBOCYTOPENIC PURPURA
     Dosage: 150 MCG, QWK
     Route: 058
     Dates: start: 20170510, end: 20171025

REACTIONS (2)
  - Off label use [Unknown]
  - Thrombocytosis [Not Recovered/Not Resolved]

NARRATIVE: CASE EVENT DATE: 20170523
